FAERS Safety Report 20174649 (Version 1)
Quarter: 2021Q4

REPORT INFORMATION
  Report Type: Spontaneous
  Country: PT (occurrence: AO)
  Receive Date: 20211213
  Receipt Date: 20211213
  Transmission Date: 20220303
  Serious: Yes (Other)
  Sender: FDA-Public Use
  Company Number: PT-SUN PHARMACEUTICAL INDUSTRIES LTD-2021R1-319370

PATIENT
  Age: 32 Year
  Sex: Female

DRUGS (1)
  1. MEDROXYPROGESTERONE [Suspect]
     Active Substance: MEDROXYPROGESTERONE
     Indication: Gluteoplasty
     Dosage: 25 MILLIGRAM, DAILY
     Route: 058

REACTIONS (3)
  - Injection site panniculitis [Recovered/Resolved]
  - Intentional product use issue [Unknown]
  - Oligomenorrhoea [Unknown]
